FAERS Safety Report 12186343 (Version 1)
Quarter: 2016Q1

REPORT INFORMATION
  Report Type: Spontaneous
  Country: US (occurrence: US)
  Receive Date: 20160317
  Receipt Date: 20160317
  Transmission Date: 20160526
  Serious: No
  Sender: FDA-Public Use
  Company Number: US-AMGEN-USASP2016030416

PATIENT
  Age: 57 Year
  Sex: Female

DRUGS (1)
  1. ENBREL [Suspect]
     Active Substance: ETANERCEPT
     Indication: RHEUMATOID ARTHRITIS
     Dosage: 50 MG, QWK
     Route: 065
     Dates: start: 201602

REACTIONS (7)
  - Feeling abnormal [Unknown]
  - Pharyngeal disorder [Unknown]
  - Vomiting [Unknown]
  - Diarrhoea [Unknown]
  - Nasopharyngitis [Unknown]
  - Dysgeusia [Unknown]
  - Cough [Unknown]

NARRATIVE: CASE EVENT DATE: 201602
